FAERS Safety Report 23889738 (Version 1)
Quarter: 2024Q2

REPORT INFORMATION
  Report Type: Spontaneous
  Country: JP (occurrence: JP)
  Receive Date: 20240523
  Receipt Date: 20240523
  Transmission Date: 20240716
  Serious: Yes (Other)
  Sender: FDA-Public Use
  Company Number: JP-RADIUS HEALTH, INC.-2024JP003545

PATIENT
  Age: 81 Year
  Sex: Female

DRUGS (4)
  1. ABALOPARATIDE [Suspect]
     Active Substance: ABALOPARATIDE
     Indication: Osteoporosis
     Dosage: 80 MICROGRAM
     Route: 058
     Dates: start: 20240513, end: 20240513
  2. CELECOXIB [Concomitant]
     Active Substance: CELECOXIB
     Indication: Product used for unknown indication
     Route: 048
  3. REBAMIPIDE [Concomitant]
     Active Substance: REBAMIPIDE
     Indication: Product used for unknown indication
     Route: 048
  4. ELDECALCITOL [Concomitant]
     Active Substance: ELDECALCITOL
     Indication: Osteoporosis
     Route: 048

REACTIONS (4)
  - Tinnitus [Unknown]
  - Nausea [Recovering/Resolving]
  - Vertigo [Recovering/Resolving]
  - Deafness [Recovering/Resolving]

NARRATIVE: CASE EVENT DATE: 20240513
